FAERS Safety Report 9415742 (Version 2)
Quarter: 2013Q4

REPORT INFORMATION
  Report Type: Spontaneous
  Country: US (occurrence: US)
  Receive Date: 20130723
  Receipt Date: 20131022
  Transmission Date: 20140711
  Serious: Yes (Other)
  Sender: FDA-Public Use
  Company Number: US-JNJFOC-20130707110

PATIENT
  Sex: Female
  Weight: 64.86 kg

DRUGS (1)
  1. NEOSPORIN ECZEMA ESSENTIALS HYDROCORTISONE ANT-ITCH CREAM [Suspect]
     Indication: PSORIASIS
     Dosage: DIME-SIZE, 3 TO 4 TIMES PER DAY
     Route: 061
     Dates: start: 2012

REACTIONS (3)
  - Psoriasis [Recovered/Resolved]
  - Pain [Recovered/Resolved]
  - Burning sensation [Unknown]
